FAERS Safety Report 5448298-5 (Version None)
Quarter: 2007Q3

REPORT INFORMATION
  Report Type: 
  Country: None (occurrence: None)
  Receive Date: 20070906
  Receipt Date: 20070824
  Transmission Date: 20080115
  Serious: Yes (Other)
  Sender: FDA-Public Use
  Company Number: ENC200700148

PATIENT
  Age: 78 Year
  Sex: Male

DRUGS (12)
  1. ARGATROBAN(ARGATROBAN) INJECTION, 100MG/M100ML [Suspect]
     Indication: HEPARIN-INDUCED THROMBOCYTOPENIA
     Dosage: 384 MG, INTRAVENOUS
     Route: 042
     Dates: start: 20070806, end: 20070809
  2. ARGATROBAN(ARGATROBAN) INJECTION, 100MG/M100ML [Suspect]
     Indication: PULMONARY EMBOLISM
     Dosage: 384 MG, INTRAVENOUS
     Route: 042
     Dates: start: 20070806, end: 20070809
  3. UNACID (SULTAMICILLIN TOSILATE) [Concomitant]
     Indication: DISEASE RECURRENCE
  4. AMITRIPTYLINE HYDROCHLORIDE [Concomitant]
  5. ATORVASTATIN CALCIUM [Concomitant]
  6. METOPROLOL SUCCINATE [Concomitant]
  7. NOVALGIN (METAMIZOLE SODIUM) [Concomitant]
  8. LAXOBERAL (SODIUM PICOSULFATE) [Concomitant]
  9. DILTIAZEM [Concomitant]
  10. CYNT (MOXONIDINE) [Concomitant]
  11. ENALAPRIL MALEATE [Concomitant]
  12. TOREM (TORASEMIDE) [Concomitant]

REACTIONS (3)
  - AGGRESSION [None]
  - AGITATION [None]
  - CONFUSIONAL STATE [None]
